FAERS Safety Report 6419774-3 (Version None)
Quarter: 2009Q4

REPORT INFORMATION
  Report Type: 
  Country: None (occurrence: None)
  Receive Date: 20091016
  Receipt Date: 20090908
  Transmission Date: 20100525
  Serious: Yes (Hospitalization)
  Sender: FDA-Public Use
  Company Number: KV200900741

PATIENT
  Age: 51 Year
  Sex: Male
  Weight: 108.9 kg

DRUGS (15)
  1. MORPHINE SULFATE [Suspect]
     Indication: PANCREATITIS CHRONIC
     Dosage: 60 MG, QID, ORAL
     Route: 048
  2. MORPHINE SULFATE [Suspect]
     Indication: PANCREATITIS CHRONIC
     Dosage: 100 MG, QID, ORAL
     Route: 048
  3. OXYCODONE HYDROCHLORIDE [Suspect]
     Indication: PANCREATITIS CHRONIC
     Dosage: 15 MG, QID, ORAL
     Route: 048
  4. AMBIEN [Concomitant]
  5. BACLOFEN [Concomitant]
  6. GABAPENTIN [Concomitant]
  7. INDOMETHACIN /00003801/ (INDOMETACIN) [Concomitant]
  8. LIDODERM [Concomitant]
  9. PREDNISONE TAB [Concomitant]
  10. PROMETHAZINE [Concomitant]
  11. PROPANTHELINE (PROPANTHELINE) [Concomitant]
  12. TRAZODONE HCL [Concomitant]
  13. ERGOCALCIFEROL [Concomitant]
  14. ZANTAC /00550802/ (RANITIDINE HYDROCHLORIDE) [Concomitant]
  15. OXYGEN (OXYGEN) [Concomitant]

REACTIONS (13)
  - ACCIDENTAL OVERDOSE [None]
  - DEPRESSION [None]
  - DRUG LABEL CONFUSION [None]
  - DRUG SCREEN POSITIVE [None]
  - DYSPNOEA [None]
  - ENCEPHALOPATHY [None]
  - HEART RATE IRREGULAR [None]
  - HYPERHIDROSIS [None]
  - MALAISE [None]
  - PUPIL FIXED [None]
  - RESPIRATORY RATE DECREASED [None]
  - SOMNOLENCE [None]
  - UNRESPONSIVE TO STIMULI [None]
